FAERS Safety Report 4854971-X (Version None)
Quarter: 2005Q4

REPORT INFORMATION
  Report Type: 
  Country: None (occurrence: None)
  Receive Date: 20051215
  Receipt Date: 20051202
  Transmission Date: 20060501
  Serious: Yes (Other)
  Sender: FDA-Public Use
  Company Number: US-GILEAD-2005-0008997

PATIENT
  Age: 37 Year
  Sex: Male

DRUGS (3)
  1. VIREAD [Suspect]
     Indication: HIV INFECTION
  2. STAVUDINE [Concomitant]
     Indication: HIV INFECTION
  3. LOPINAVIR/RITONAVIR [Concomitant]
     Indication: HIV INFECTION

REACTIONS (3)
  - CD4 LYMPHOCYTES DECREASED [None]
  - IMMUNE RECONSTITUTION SYNDROME [None]
  - KAPOSI'S SARCOMA [None]
